FAERS Safety Report 4541072-3 (Version None)
Quarter: 2004Q4

REPORT INFORMATION
  Report Type: 
  Country: None (occurrence: None)
  Receive Date: 20041228
  Receipt Date: 20041220
  Transmission Date: 20050328
  Serious: Yes (Hospitalization)
  Sender: FDA-Public Use
  Company Number: 2004GB03152

PATIENT
  Age: 46 Year
  Sex: Female
  Weight: 130 kg

DRUGS (3)
  1. ANASTROZOLE [Suspect]
     Indication: BREAST CANCER
     Dosage: 1 DF DAILY, PO
     Route: 048
     Dates: start: 20040308, end: 20041202
  2. CO-DYDRAMOL [Concomitant]
  3. PNEUMOVAX II [Concomitant]

REACTIONS (2)
  - EPISTAXIS [None]
  - MALIGNANT HYPERTENSION [None]
